FAERS Safety Report 8232862-4 (Version None)
Quarter: 2012Q1

REPORT INFORMATION
  Report Type: 
  Country: None (occurrence: None)
  Receive Date: 20120324
  Receipt Date: 20120319
  Transmission Date: 20120608
  Serious: Yes (Disabling, Other)
  Sender: FDA-Public Use
  Company Number: US-ASTRAZENECA-2011SE78597

PATIENT
  Age: 52 Year
  Sex: Male

DRUGS (4)
  1. TEMAZEPAM [Concomitant]
  2. NEXIUM [Suspect]
     Indication: BARRETT'S OESOPHAGUS
     Route: 048
  3. TRAZODONE HCL [Concomitant]
  4. PRILOSEC [Suspect]
     Route: 048

REACTIONS (13)
  - VOMITING [None]
  - MALAISE [None]
  - OFF LABEL USE [None]
  - AGGRESSION [None]
  - HAND DEFORMITY [None]
  - BARRETT'S OESOPHAGUS [None]
  - DISTURBANCE IN SOCIAL BEHAVIOUR [None]
  - DRUG INEFFECTIVE [None]
  - GASTROOESOPHAGEAL REFLUX DISEASE [None]
  - ABNORMAL BEHAVIOUR [None]
  - HOMICIDAL IDEATION [None]
  - PRECANCEROUS CELLS PRESENT [None]
  - DRUG DOSE OMISSION [None]
